FAERS Safety Report 9503004 (Version 1)
Quarter: 2013Q3

REPORT INFORMATION
  Report Type: Spontaneous
  Country: JP (occurrence: JP)
  Receive Date: 20130906
  Receipt Date: 20130906
  Transmission Date: 20140515
  Serious: Yes (Hospitalization)
  Sender: FDA-Public Use
  Company Number: JP-ASTELLAS-2013JP009061

PATIENT
  Sex: Male

DRUGS (3)
  1. VESICARE [Suspect]
     Dosage: 5 MG, UID/QD
     Route: 048
     Dates: end: 201308
  2. URIEF [Suspect]
     Dosage: UNK
     Route: 048
     Dates: end: 201308
  3. MEDICINE FOR CHOLESTEROL [Concomitant]
     Route: 048

REACTIONS (7)
  - Aspartate aminotransferase increased [Recovered/Resolved]
  - Alanine aminotransferase increased [Recovered/Resolved]
  - Blood alkaline phosphatase increased [Recovered/Resolved]
  - Gamma-glutamyltransferase increased [Recovered/Resolved]
  - Blood bilirubin increased [Recovered/Resolved]
  - C-reactive protein increased [Recovered/Resolved]
  - Pyrexia [Recovered/Resolved]
